FAERS Safety Report 15569862 (Version 3)
Quarter: 2019Q1

REPORT INFORMATION
  Report Type: Spontaneous
  Country: US (occurrence: US)
  Receive Date: 20181031
  Receipt Date: 20190305
  Transmission Date: 20190417
  Serious: No
  Sender: FDA-Public Use
  Company Number: US-PFIZER INC-2018439959

PATIENT
  Age: 82 Year
  Sex: Female
  Weight: 78.93 kg

DRUGS (2)
  1. PREMARIN [Suspect]
     Active Substance: ESTROGENS, CONJUGATED
     Indication: CYSTITIS
     Dosage: UNK, 2X/WEEK [A SMALL AMOUNT IN TUBE INSERTED INTO VAGINA TWICE A WEEK]
     Route: 067
     Dates: start: 2017
  2. PREMARIN [Suspect]
     Active Substance: ESTROGENS, CONJUGATED
     Indication: FUNGAL INFECTION

REACTIONS (4)
  - Dyspareunia [Unknown]
  - Product prescribing issue [Unknown]
  - Product dispensing error [Unknown]
  - Drug ineffective for unapproved indication [Not Recovered/Not Resolved]
